FAERS Safety Report 15600349 (Version 2)
Quarter: 2018Q4

REPORT INFORMATION
  Report Type: Report from Study
  Country: US (occurrence: US)
  Receive Date: 20181109
  Receipt Date: 20181114
  Transmission Date: 20190205
  Serious: No
  Sender: FDA-Public Use
  Company Number: US-ROCHE-2212451

PATIENT
  Sex: Female

DRUGS (2)
  1. COPAXONE [Concomitant]
     Active Substance: GLATIRAMER ACETATE
     Route: 065
  2. OCREVUS [Suspect]
     Active Substance: OCRELIZUMAB
     Indication: RELAPSING MULTIPLE SCLEROSIS
     Dosage: 1ST SPLIT DOSE 17/OCT/2018; 2ND SPLIT 30/OCT/2018 ;ONGOING: YES
     Route: 042
     Dates: start: 20181017

REACTIONS (1)
  - Bronchitis [Not Recovered/Not Resolved]
